FAERS Safety Report 25649528 (Version 4)
Quarter: 2025Q4

REPORT INFORMATION
  Report Type: Report from Study
  Country: PH (occurrence: PH)
  Receive Date: 20250806
  Receipt Date: 20251125
  Transmission Date: 20260118
  Serious: Yes (Death, Life-Threatening, Hospitalization)
  Sender: ROCHE
  Company Number: PH-ROCHE-10000353347

PATIENT
  Age: 21 Year
  Sex: Female
  Weight: 41 kg

DRUGS (4)
  1. TECENTRIQ [Suspect]
     Active Substance: ATEZOLIZUMAB
     Indication: Product used for unknown indication
     Route: 065
  2. AVASTIN [Suspect]
     Active Substance: BEVACIZUMAB
     Indication: Product used for unknown indication
     Route: 065
  3. AVASTIN [Suspect]
     Active Substance: BEVACIZUMAB
     Route: 065
  4. AVASTIN [Suspect]
     Active Substance: BEVACIZUMAB
     Route: 065

REACTIONS (10)
  - Loss of consciousness [Unknown]
  - Blood glucose decreased [Unknown]
  - Tumour rupture [Unknown]
  - Haemorrhage [Unknown]
  - Infected neoplasm [Unknown]
  - Coma [Fatal]
  - Hepatic rupture [Fatal]
  - Cardiomegaly [Fatal]
  - Pneumonia [Fatal]
  - Neoplasm malignant [Fatal]

NARRATIVE: CASE EVENT DATE: 20250729
